FAERS Safety Report 7552220-5 (Version None)
Quarter: 2011Q2

REPORT INFORMATION
  Report Type: 
  Country: None (occurrence: None)
  Receive Date: 20110616
  Receipt Date: 20031202
  Transmission Date: 20111010
  Serious: Yes (Other)
  Sender: FDA-Public Use
  Company Number: PHHO2003CO15633

PATIENT
  Sex: Female

DRUGS (2)
  1. ENALAPRIL MALEATE [Concomitant]
  2. DIOVAN HCT [Suspect]
     Indication: HYPERTENSION
     Dosage: 160 MG
     Route: 048
     Dates: start: 20030801

REACTIONS (1)
  - CEREBROVASCULAR ACCIDENT [None]
